FAERS Safety Report 9839414 (Version 2)
Quarter: 2016Q3

REPORT INFORMATION
  Report Type: Spontaneous
  Country: US (occurrence: US)
  Receive Date: 20140123
  Receipt Date: 20160801
  Transmission Date: 20161109
  Serious: Yes (Death)
  Sender: FDA-Public Use
  Company Number: US-ROCHE-1338627

PATIENT
  Sex: Female
  Weight: 127.12 kg

DRUGS (1)
  1. XELODA [Suspect]
     Active Substance: CAPECITABINE
     Indication: MALIGNANT NIPPLE NEOPLASM
     Route: 048
     Dates: start: 20131125

REACTIONS (1)
  - Death [Fatal]
